FAERS Safety Report 13887707 (Version 1)
Quarter: 2017Q3

REPORT INFORMATION
  Report Type: Spontaneous
  Country: US (occurrence: US)
  Receive Date: 20170821
  Receipt Date: 20170821
  Transmission Date: 20171127
  Serious: No
  Sender: FDA-Public Use
  Company Number: US-ROCHE-796455

PATIENT
  Sex: Female
  Weight: 92.5 kg

DRUGS (15)
  1. RECLAST [Concomitant]
     Active Substance: ZOLEDRONIC ACID
     Route: 065
  2. RANITIDINE. [Concomitant]
     Active Substance: RANITIDINE
     Route: 065
  3. ACTEMRA [Suspect]
     Active Substance: TOCILIZUMAB
     Indication: RHEUMATOID ARTHRITIS
     Route: 042
  4. ACTEMRA [Suspect]
     Active Substance: TOCILIZUMAB
     Route: 042
  5. FLUOXETINE [Concomitant]
     Active Substance: FLUOXETINE HYDROCHLORIDE
     Route: 065
  6. WELCHOL [Concomitant]
     Active Substance: COLESEVELAM HYDROCHLORIDE
     Route: 065
  7. CYCLOBENZAPRINE. [Concomitant]
     Active Substance: CYCLOBENZAPRINE
     Route: 065
  8. ACTEMRA [Suspect]
     Active Substance: TOCILIZUMAB
     Route: 042
  9. NEXIUM [Concomitant]
     Active Substance: ESOMEPRAZOLE MAGNESIUM
     Route: 065
  10. ACTEMRA [Suspect]
     Active Substance: TOCILIZUMAB
     Route: 042
  11. LASIX [Concomitant]
     Active Substance: FUROSEMIDE
     Route: 065
  12. POTASSIUM [Concomitant]
     Active Substance: POTASSIUM
     Route: 065
  13. DETROL [Concomitant]
     Active Substance: TOLTERODINE TARTRATE
     Route: 065
  14. LISINOPRIL. [Concomitant]
     Active Substance: LISINOPRIL
     Route: 065
  15. PREDNISONE. [Concomitant]
     Active Substance: PREDNISONE
     Route: 065

REACTIONS (2)
  - Dental restoration failure [Recovered/Resolved]
  - Tooth fracture [Recovered/Resolved]
